FAERS Safety Report 23906287 (Version 3)
Quarter: 2024Q3

REPORT INFORMATION
  Report Type: Spontaneous
  Country: JP (occurrence: JP)
  Receive Date: 20240528
  Receipt Date: 20240701
  Transmission Date: 20241017
  Serious: No
  Sender: CSL BEHRING
  Company Number: JP-BEH-2024172722

PATIENT
  Age: 15 Year
  Sex: Male

DRUGS (2)
  1. HIZENTRA [Suspect]
     Active Substance: HUMAN IMMUNOGLOBULIN G
     Indication: Hypogammaglobulinaemia
     Dosage: 10 G, QOW
     Route: 058
     Dates: end: 20240506
  2. HIZENTRA [Suspect]
     Active Substance: HUMAN IMMUNOGLOBULIN G
     Dosage: UNK, QW
     Route: 058
     Dates: start: 201901

REACTIONS (3)
  - Metachromatic leukodystrophy [Fatal]
  - Cardiac disorder [Fatal]
  - Cardiac arrest [Fatal]
